FAERS Safety Report 22223454 (Version 9)
Quarter: 2024Q3

REPORT INFORMATION
  Report Type: Spontaneous
  Country: CA (occurrence: CA)
  Receive Date: 20230418
  Receipt Date: 20240812
  Transmission Date: 20241017
  Serious: Yes (Other)
  Sender: PFIZER
  Company Number: CA-PFIZER INC-202300049335

PATIENT
  Age: 25 Year
  Sex: Female
  Weight: 81.633 kg

DRUGS (6)
  1. ABRILADA [Suspect]
     Active Substance: ADALIMUMAB-AFZB
     Indication: Crohn^s disease
     Dosage: 160 MG W0, 80 MG W2, THEN 40 MG, EVERY 2 WEEKS STARTING W4
     Route: 058
     Dates: start: 20230224
  2. ABRILADA [Suspect]
     Active Substance: ADALIMUMAB-AFZB
     Dosage: 160 MG W0, 80 MG W2, THEN 40 MG, EVERY 2 WEEKS STARTING W4
     Route: 058
     Dates: start: 20230310
  3. ABRILADA [Suspect]
     Active Substance: ADALIMUMAB-AFZB
     Dosage: 40 MG, EVERY 2 WEEKS
     Route: 058
  4. ABRILADA [Suspect]
     Active Substance: ADALIMUMAB-AFZB
     Dosage: 40 MG, EVERY 2 WEEKS
     Route: 058
     Dates: start: 2024
  5. INFLECTRA [Concomitant]
     Active Substance: INFLIXIMAB-DYYB
     Indication: Crohn^s disease
     Dosage: 400 MG
     Route: 042
     Dates: start: 20220205
  6. INFLECTRA [Concomitant]
     Active Substance: INFLIXIMAB-DYYB
     Dosage: UNK
     Route: 042
     Dates: start: 20230112

REACTIONS (11)
  - Anal fistula [Not Recovered/Not Resolved]
  - Drug level below therapeutic [Unknown]
  - Impaired quality of life [Unknown]
  - Anal fissure [Recovered/Resolved]
  - Abscess [Not Recovered/Not Resolved]
  - Impaired healing [Unknown]
  - Condition aggravated [Not Recovered/Not Resolved]
  - Device use error [Unknown]
  - Incorrect dose administered by device [Unknown]
  - Device leakage [Unknown]
  - Off label use [Unknown]

NARRATIVE: CASE EVENT DATE: 20230101
